FAERS Safety Report 4764627-X (Version None)
Quarter: 2005Q3

REPORT INFORMATION
  Report Type: 
  Country: None (occurrence: None)
  Receive Date: 20050909
  Receipt Date: 20050329
  Transmission Date: 20060218
  Serious: Yes (Hospitalization)
  Sender: FDA-Public Use
  Company Number: US-GLAXOSMITHKLINE-A0555653A

PATIENT
  Age: 12 Year
  Sex: Male

DRUGS (1)
  1. PAXIL [Suspect]
     Indication: ANXIETY
     Dosage: 30MG UNKNOWN
     Route: 048
     Dates: start: 20010901, end: 20020701

REACTIONS (12)
  - AGGRESSION [None]
  - AGITATION [None]
  - ANGER [None]
  - ANXIETY [None]
  - HALLUCINATION [None]
  - HOMICIDAL IDEATION [None]
  - HOSTILITY [None]
  - IMPULSIVE BEHAVIOUR [None]
  - MOOD SWINGS [None]
  - SELF MUTILATION [None]
  - SUICIDAL IDEATION [None]
  - SYNCOPE [None]
